FAERS Safety Report 6059267-9 (Version None)
Quarter: 2009Q1

REPORT INFORMATION
  Report Type: 
  Country: None (occurrence: None)
  Receive Date: 20090130
  Receipt Date: 20090119
  Transmission Date: 20090719
  Serious: Yes (Hospitalization, Other)
  Sender: FDA-Public Use
  Company Number: FR-ROCHE-609478

PATIENT
  Age: 56 Year
  Sex: Male

DRUGS (1)
  1. XELODA [Suspect]
     Route: 065
     Dates: start: 20080901, end: 20081201

REACTIONS (5)
  - BLADDER DISTENSION [None]
  - HYPERAESTHESIA [None]
  - HYPOREFLEXIA [None]
  - MUSCULAR WEAKNESS [None]
  - PARAESTHESIA [None]
